FAERS Safety Report 15183712 (Version 4)
Quarter: 2018Q3

REPORT INFORMATION
  Report Type: Report from Study
  Country: US (occurrence: US)
  Receive Date: 20180723
  Receipt Date: 20180919
  Transmission Date: 20181010
  Serious: Yes (Hospitalization)
  Sender: FDA-Public Use
  Company Number: US-ACTELION-A-NJ2018-175890

PATIENT
  Age: 61 Year
  Sex: Female
  Weight: 54.42 kg

DRUGS (15)
  1. OPSUMIT [Suspect]
     Active Substance: MACITENTAN
     Indication: PULMONARY ARTERIAL HYPERTENSION
     Dosage: 10 MG, QD
     Route: 048
  2. ADCIRCA [Concomitant]
     Active Substance: TADALAFIL
  3. PANTOPRAZOLE [Concomitant]
     Active Substance: PANTOPRAZOLE
  4. ONDANSETRON [Concomitant]
     Active Substance: ONDANSETRON
  5. RANITIDINE. [Concomitant]
     Active Substance: RANITIDINE
  6. VITAMIN D [Concomitant]
     Active Substance: CHOLECALCIFEROL
  7. VELETRI [Suspect]
     Active Substance: EPOPROSTENOL
     Indication: PULMONARY ARTERIAL HYPERTENSION
     Dosage: 60 NG/KG, PER MIN
     Route: 042
  8. AMLODIPINE [Concomitant]
     Active Substance: AMLODIPINE BESYLATE
  9. MILRINONE [Concomitant]
     Active Substance: MILRINONE
  10. DOK [Concomitant]
     Active Substance: DOCUSATE SODIUM
  11. CARISOPRODOL. [Concomitant]
     Active Substance: CARISOPRODOL
  12. LORATADINE. [Concomitant]
     Active Substance: LORATADINE
  13. SOMA [Concomitant]
     Active Substance: CARISOPRODOL
  14. TRAMADOL. [Concomitant]
     Active Substance: TRAMADOL
  15. ZYRTEC [Concomitant]
     Active Substance: CETIRIZINE HYDROCHLORIDE

REACTIONS (10)
  - Gastric ulcer [Unknown]
  - Pallor [Unknown]
  - Transfusion [Unknown]
  - Ulcer haemorrhage [Unknown]
  - Drug dose omission [Not Recovered/Not Resolved]
  - Gastrointestinal haemorrhage [Unknown]
  - Rectal haemorrhage [Unknown]
  - Blood pressure abnormal [Unknown]
  - Dyspnoea [Unknown]
  - Peripheral coldness [Unknown]

NARRATIVE: CASE EVENT DATE: 201807
